FAERS Safety Report 8534568 (Version 3)
Quarter: 2013Q1

REPORT INFORMATION
  Report Type: Report from Study
  Country: CA (occurrence: CA)
  Receive Date: 20120427
  Receipt Date: 20130206
  Transmission Date: 20140127
  Serious: Yes (Hospitalization)
  Sender: FDA-Public Use
  Company Number: CA-SHIRE-ALL1-2012-02007

PATIENT
  Age: 15 Year
  Sex: Male
  Weight: 30.5 kg

DRUGS (22)
  1. IDURSULFASE [Suspect]
     Indication: MUCOPOLYSACCHARIDOSIS II
     Dosage: 18 MG, 1X/WEEK
     Route: 041
  2. IDURSULFASE [Suspect]
     Dosage: 12 MG, 1X/WEEK
     Route: 041
     Dates: start: 20080813
  3. PREDNISONE [Concomitant]
     Indication: PREMEDICATION
     Dosage: 30 MG, 1X/WEEK (NIGHT BEFORE THE ELAPRASE INFUSION)
     Route: 048
     Dates: start: 20120304
  4. ATROVENT [Concomitant]
     Indication: NASAL CONGESTION
     Dosage: 0.03 SPRAY, OTHER (2-3 TIMES DAILY)
     Route: 045
     Dates: start: 20110611
  5. METHYLPREDNISOLONE [Concomitant]
     Indication: PREMEDICATION
     Dosage: 40 MG, AS REQ^D
     Route: 041
     Dates: start: 20081126
  6. METHYLPREDNISOLONE [Concomitant]
     Dosage: 30 MG, AS REQ^D
     Route: 041
     Dates: start: 20081008, end: 20081125
  7. DIPHENHYDRAMINE [Concomitant]
     Indication: PREMEDICATION
     Dosage: 37 MG, AS REQ^D
     Route: 065
     Dates: start: 20081001
  8. PULMICORT [Concomitant]
     Indication: RESPIRATORY DISORDER
     Dosage: 1 MG, 2X/DAY:BID
     Route: 055
     Dates: start: 2008
  9. ACETAMINOPHEN [Concomitant]
     Indication: PREMEDICATION
     Dosage: 350 MG, AS REQ^D
     Route: 065
     Dates: start: 20080911
  10. ACETAMINOPHEN [Concomitant]
     Dosage: 450 MG, AS REQ^D
     Route: 048
     Dates: start: 20080813, end: 20080910
  11. SALBUTAMOL [Concomitant]
     Indication: PREMEDICATION
     Dosage: 0.9 ML, AS REQ^D
     Route: 055
     Dates: start: 20080813
  12. MELATONIN [Concomitant]
     Indication: SLEEP DISORDER
     Dosage: 2 MG, 1X/DAY:QD
     Route: 048
     Dates: start: 200803
  13. TEGRETOL [Concomitant]
     Indication: NERVOUS SYSTEM DISORDER
     Dosage: 140 MG, 1X/DAY:QD (AT NIGHT)
     Route: 048
     Dates: start: 20070514
  14. TEGRETOL [Concomitant]
     Dosage: 100 MG, 1X/DAY:QD (AM)
     Route: 048
     Dates: start: 20070514
  15. FLONASE [Concomitant]
     Indication: RESPIRATORY DISORDER
     Dosage: 50 ?G, 2X/DAY:BID
     Route: 055
     Dates: start: 2007
  16. ZANTAC [Concomitant]
     Indication: GASTROINTESTINAL DISORDER
     Dosage: 30 MG, 1X/DAY:QD
     Route: 048
     Dates: start: 2006
  17. LACTULOSE [Concomitant]
     Indication: SUPPLEMENTATION THERAPY
     Dosage: 10 ML, 2X/DAY:BID
     Route: 051
  18. CLONAZEPAM [Concomitant]
     Indication: SLEEP DISORDER
     Dosage: 0.2 MG, 1X/DAY:QD
     Route: 051
  19. CHOLECALCIFEROL [Concomitant]
     Indication: VITAMIN SUPPLEMENTATION
     Dosage: 400 MG, 1X/DAY:QD
     Route: 051
  20. GABAPENTIN [Concomitant]
     Indication: PAIN
     Dosage: 300 MG, 1X/DAY:QD
     Route: 051
  21. OTHER THERAPEUTIC PRODUCTS [Concomitant]
     Indication: GASTROINTESTINAL DISORDER CONGENITAL
     Dosage: 20 MG, 3X/DAY:TID
     Route: 051
  22. VENTOLIN                           /00139501/ [Concomitant]
     Indication: RESPIRATORY DISORDER
     Dosage: 1 DF, AS REQ^D
     Route: 055
     Dates: start: 2005

REACTIONS (3)
  - Device leakage [Recovered/Resolved]
  - Adverse event [Recovered/Resolved]
  - Catheter site swelling [Recovered/Resolved]
